FAERS Safety Report 24686091 (Version 1)
Quarter: 2024Q4

REPORT INFORMATION
  Report Type: Spontaneous
  Country: NP (occurrence: NP)
  Receive Date: 20241202
  Receipt Date: 20241202
  Transmission Date: 20250115
  Serious: Yes (Life-Threatening, Hospitalization, Other)
  Sender: WINDER LABORATORY
  Company Number: NP-WINDERLABS-2024WILIT00005

PATIENT
  Age: 46 Year
  Sex: Male

DRUGS (1)
  1. MORPHINE SULFATE [Suspect]
     Active Substance: MORPHINE SULFATE
     Indication: Product used for unknown indication
     Route: 065

REACTIONS (3)
  - Herpes simplex meningoencephalitis [Recovered/Resolved]
  - Drug dependence [Unknown]
  - Drug abuse [Unknown]
